FAERS Safety Report 14378264 (Version 12)
Quarter: 2019Q3

REPORT INFORMATION
  Report Type: Spontaneous
  Country: US (occurrence: US)
  Receive Date: 20180111
  Receipt Date: 20190809
  Transmission Date: 20191004
  Serious: Yes (Hospitalization)
  Sender: FDA-Public Use
  Company Number: US-ACTELION-A-NJ2018-165702

PATIENT
  Age: 41 Year
  Sex: Female
  Weight: 98.87 kg

DRUGS (11)
  1. UPTRAVI [Suspect]
     Active Substance: SELEXIPAG
     Dosage: 400 MCG, BID
     Route: 048
  2. UPTRAVI [Suspect]
     Active Substance: SELEXIPAG
     Dosage: 1000 MCG, BID
     Route: 048
  3. UPTRAVI [Suspect]
     Active Substance: SELEXIPAG
     Indication: PULMONARY ARTERIAL HYPERTENSION
     Dosage: 1200 MCG, BID
     Route: 048
     Dates: start: 20180725
  4. IMODIUM [Concomitant]
     Active Substance: LOPERAMIDE HYDROCHLORIDE
  5. PEPTO-BISMOL [Concomitant]
     Active Substance: BISMUTH SUBSALICYLATE
  6. UPTRAVI [Suspect]
     Active Substance: SELEXIPAG
     Dosage: 1400 MCG, BID
     Route: 048
  7. ORENITRAM [Suspect]
     Active Substance: TREPROSTINIL
     Indication: PRODUCT USED FOR UNKNOWN INDICATION
     Dosage: 1.875 MG, TID
     Route: 065
  8. RANITIDINE. [Concomitant]
     Active Substance: RANITIDINE
  9. LORAZEPAM. [Concomitant]
     Active Substance: LORAZEPAM
  10. OPSUMIT [Suspect]
     Active Substance: MACITENTAN
     Indication: PULMONARY ARTERIAL HYPERTENSION
     Dosage: 10 MG, QD
     Route: 048
     Dates: start: 20170818
  11. TUMS [Concomitant]
     Active Substance: CALCIUM CARBONATE

REACTIONS (19)
  - Fatigue [Unknown]
  - Headache [Unknown]
  - Hiatus hernia [Recovered/Resolved]
  - Gastrooesophageal reflux disease [Unknown]
  - Cough [Unknown]
  - Abdominal pain [Unknown]
  - Panic attack [Unknown]
  - Abdominal discomfort [Unknown]
  - Dyspnoea [Unknown]
  - Dyspnoea exertional [Unknown]
  - Nausea [Unknown]
  - Chest discomfort [Unknown]
  - Myalgia [Unknown]
  - Pulmonary arterial pressure increased [Unknown]
  - Oesophagogastric fundoplasty [Recovered/Resolved]
  - Anxiety [Recovered/Resolved]
  - Flushing [Unknown]
  - Upper respiratory tract infection [Unknown]
  - Muscle spasms [Unknown]

NARRATIVE: CASE EVENT DATE: 20171225
